FAERS Safety Report 4854260-3 (Version None)
Quarter: 2005Q4

REPORT INFORMATION
  Report Type: 
  Country: None (occurrence: None)
  Receive Date: 20051213
  Receipt Date: 20051129
  Transmission Date: 20060501
  Serious: Yes (Other)
  Sender: FDA-Public Use
  Company Number: 2004S1000182

PATIENT
  Age: 25 Year
  Sex: Female

DRUGS (5)
  1. CUBICIN [Suspect]
     Indication: ENDOCARDITIS
     Dosage: 8 MG/KG;Q24/IV
     Route: 042
     Dates: start: 20040101
  2. CUBICIN [Suspect]
     Indication: ENTEROCOCCAL INFECTION
     Dosage: 8 MG/KG;Q24/IV
     Route: 042
     Dates: start: 20040101
  3. LINEZOLID [Concomitant]
  4. GENTAMICIN [Concomitant]
  5. RIFAMPIN [Concomitant]

REACTIONS (3)
  - ABDOMINAL PAIN [None]
  - HYPOTENSION [None]
  - PAIN [None]
